FAERS Safety Report 15346800 (Version 1)
Quarter: 2018Q3

REPORT INFORMATION
  Report Type: Report from Study
  Country: CN (occurrence: CN)
  Receive Date: 20180904
  Receipt Date: 20180904
  Transmission Date: 20181010
  Serious: Yes (Other)
  Sender: FDA-Public Use
  Company Number: CN-ROCHE-2110944

PATIENT
  Sex: Female
  Weight: 52 kg

DRUGS (1)
  1. AVASTIN [Suspect]
     Active Substance: BEVACIZUMAB
     Indication: COLORECTAL CANCER METASTATIC
     Route: 041
     Dates: start: 20170924

REACTIONS (5)
  - Haemoglobin decreased [Unknown]
  - Haemoglobin decreased [Recovered/Resolved with Sequelae]
  - Asthenia [Unknown]
  - Anaemia [Unknown]
  - Anaemia [Recovering/Resolving]
